FAERS Safety Report 8224068-X (Version None)
Quarter: 2012Q1

REPORT INFORMATION
  Report Type: 
  Country: None (occurrence: None)
  Receive Date: 20120321
  Receipt Date: 20120316
  Transmission Date: 20120608
  Serious: No
  Sender: FDA-Public Use
  Company Number: PHHY2011US67143

PATIENT
  Sex: Male
  Weight: 67.3 kg

DRUGS (8)
  1. TASIGNA [Suspect]
     Indication: CHRONIC MYELOID LEUKAEMIA
     Dosage: 400 MG, BID
     Route: 048
     Dates: start: 20100301, end: 20110214
  2. POTASSIUM CHLORIDE [Concomitant]
     Dosage: 20 MG, PRN
     Dates: start: 20080125
  3. ACYCLOVIR [Concomitant]
     Dosage: 400 MG, BID
     Route: 048
     Dates: start: 20080125
  4. TASIGNA [Suspect]
     Dosage: 400 MG, BID
     Route: 048
     Dates: start: 20110330
  5. CARDIZEM CD [Concomitant]
     Dosage: UNK
     Dates: start: 20070314
  6. TASIGNA [Suspect]
     Dosage: 400 MG, QD
     Route: 048
     Dates: start: 20110601, end: 20110722
  7. TOPROL-XL [Concomitant]
     Dosage: 200 MG, QD
     Dates: start: 20070404
  8. CRESTOR [Concomitant]
     Dosage: 40 MG, QD
     Dates: start: 20040730

REACTIONS (8)
  - DECREASED APPETITE [None]
  - LETHARGY [None]
  - FATIGUE [None]
  - EARLY SATIETY [None]
  - DYSPEPSIA [None]
  - WEIGHT DECREASED [None]
  - ABDOMINAL DISCOMFORT [None]
  - DYSPNOEA [None]
